FAERS Safety Report 6959107-7 (Version None)
Quarter: 2010Q3

REPORT INFORMATION
  Report Type: 
  Country: None (occurrence: None)
  Receive Date: 20100831
  Receipt Date: 20100818
  Transmission Date: 20110219
  Serious: Yes (Other)
  Sender: FDA-Public Use
  Company Number: AU-ELI_LILLY_AND_COMPANY-AU201008004847

PATIENT
  Sex: Male

DRUGS (1)
  1. FORTEO [Suspect]
     Indication: OSTEOPOROSIS
     Dosage: UNK, DAILY (1/D)
     Route: 065
     Dates: start: 20090617

REACTIONS (5)
  - ACCIDENT [None]
  - CERVICAL VERTEBRAL FRACTURE [None]
  - FOOT FRACTURE [None]
  - HAND FRACTURE [None]
  - LUMBAR VERTEBRAL FRACTURE [None]
